FAERS Safety Report 4555341-4 (Version None)
Quarter: 2004Q4

REPORT INFORMATION
  Report Type: 
  Country: None (occurrence: None)
  Receive Date: 20041217
  Receipt Date: 20040802
  Transmission Date: 20050328
  Serious: No
  Sender: FDA-Public Use
  Company Number: 2004-BP-06527BP

PATIENT
  Sex: Female

DRUGS (6)
  1. SPIRIVA [Suspect]
     Dosage: 18 MCG, IH
     Route: 055
  2. COREG [Concomitant]
  3. ACCUPRIL [Concomitant]
  4. DIGOXIN [Concomitant]
  5. LASIX (LASIX) [Concomitant]
  6. HYDROXYUREA [Concomitant]

REACTIONS (3)
  - INSOMNIA [None]
  - MANIA [None]
  - NERVOUSNESS [None]
